FAERS Safety Report 7216999-4 (Version None)
Quarter: 2011Q1

REPORT INFORMATION
  Report Type: 
  Country: None (occurrence: None)
  Receive Date: 20110110
  Receipt Date: 20101014
  Transmission Date: 20110831
  Serious: No
  Sender: FDA-Public Use
  Company Number: A0886742A

PATIENT
  Age: 87 Year
  Sex: Male

DRUGS (3)
  1. DIOVAN [Concomitant]
  2. STALEVO 100 [Concomitant]
  3. REQUIP XL [Suspect]
     Indication: PARKINSON'S DISEASE
     Dosage: 2MG PER DAY
     Route: 048
     Dates: start: 20100926

REACTIONS (1)
  - DRUG INEFFECTIVE [None]
